FAERS Safety Report 4554298-X (Version None)
Quarter: 2005Q1

REPORT INFORMATION
  Report Type: 
  Country: None (occurrence: None)
  Receive Date: 20050118
  Receipt Date: 20041119
  Transmission Date: 20050727
  Serious: Yes (Death)
  Sender: FDA-Public Use
  Company Number: IT-GLAXOSMITHKLINE-B0358442A

PATIENT
  Age: 34 Year
  Sex: Male

DRUGS (1)
  1. AMOXYCILLIN + CLAVULANIC ACID [Suspect]
     Indication: LARYNGOTRACHEITIS
     Dosage: 1G UNKNOWN
     Route: 048
     Dates: start: 20041117, end: 20041117

REACTIONS (9)
  - BRONCHOSPASM [None]
  - CARDIAC ARREST [None]
  - COMA [None]
  - COMPUTERISED TOMOGRAM ABNORMAL [None]
  - DYSPNOEA EXACERBATED [None]
  - ELECTROENCEPHALOGRAM ABNORMAL [None]
  - LARYNGEAL OEDEMA [None]
  - LARYNGOSPASM [None]
  - NERVOUS SYSTEM DISORDER [None]
